FAERS Safety Report 4700610-8 (Version None)
Quarter: 2005Q2

REPORT INFORMATION
  Report Type: 
  Country: None (occurrence: None)
  Receive Date: 20050627
  Receipt Date: 20050615
  Transmission Date: 20051028
  Serious: Yes (Other)
  Sender: FDA-Public Use
  Company Number: 200515118US

PATIENT
  Sex: Female

DRUGS (2)
  1. ARAVA [Suspect]
     Route: 048
  2. ACTONEL [Suspect]
     Dosage: DOSE: UNK

REACTIONS (2)
  - CHRONIC MYELOMONOCYTIC LEUKAEMIA [None]
  - EOSINOPHILIA [None]
